FAERS Safety Report 10684115 (Version 3)
Quarter: 2015Q1

REPORT INFORMATION
  Report Type: Spontaneous
  Country: GB (occurrence: GB)
  Receive Date: 20141231
  Receipt Date: 20150121
  Transmission Date: 20150720
  Serious: Yes (Other)
  Sender: FDA-Public Use
  Company Number: GB-AMGEN-GBRSP2014098823

PATIENT
  Age: 65 Year
  Sex: Male

DRUGS (3)
  1. ENBREL [Suspect]
     Active Substance: ETANERCEPT
     Indication: RHEUMATOID ARTHRITIS
     Dosage: 50 MG, UNK
     Route: 065
  2. ETORICOXIB [Concomitant]
     Active Substance: ETORICOXIB
     Dosage: UNK
     Dates: start: 20141205
  3. LEFLUNOMIDE. [Concomitant]
     Active Substance: LEFLUNOMIDE
     Dosage: UNK
     Dates: start: 2010

REACTIONS (6)
  - Chest discomfort [Recovered/Resolved]
  - Lower respiratory tract infection [Unknown]
  - Sputum discoloured [Recovered/Resolved]
  - Head discomfort [Recovered/Resolved]
  - Productive cough [Recovered/Resolved]
  - Nausea [Recovered/Resolved]

NARRATIVE: CASE EVENT DATE: 20141205
